FAERS Safety Report 9690229 (Version 5)
Quarter: 2014Q2

REPORT INFORMATION
  Report Type: Spontaneous
  Country: US (occurrence: US)
  Receive Date: 20131115
  Receipt Date: 20140626
  Transmission Date: 20141212
  Serious: Yes (Hospitalization)
  Sender: FDA-Public Use
  Company Number: US-JNJFOC-20130513247

PATIENT
  Sex: Male

DRUGS (2)
  1. RISPERDAL [Suspect]
     Indication: AUTISM
     Route: 048
     Dates: end: 201203
  2. SEROQUEL [Concomitant]
     Indication: AUTISM
     Route: 065

REACTIONS (5)
  - Obesity [Not Recovered/Not Resolved]
  - Aggression [Unknown]
  - Gynaecomastia [Unknown]
  - Emotional distress [Unknown]
  - Anxiety [Unknown]
